FAERS Safety Report 9804691 (Version 1)
Quarter: 2014Q1

REPORT INFORMATION
  Report Type: Spontaneous
  Country: US (occurrence: US)
  Receive Date: 20140108
  Receipt Date: 20140108
  Transmission Date: 20141002
  Serious: Yes (Hospitalization)
  Sender: FDA-Public Use
  Company Number: US-B.I. PHARMACEUTICALS,INC./RIDGEFIELD-2014-BI-00571BP

PATIENT
  Age: 60 Year
  Sex: Female

DRUGS (9)
  1. AGGRENOX [Suspect]
     Indication: CEREBROVASCULAR ACCIDENT PROPHYLAXIS
     Dosage: STRENGTH: 25 MG / 200 MG; DAILY DOSE: 50 MG/ 400 MG
     Route: 048
     Dates: start: 2003, end: 2011
  2. AGGRENOX [Suspect]
     Dosage: STRENGTH: 25 MG / 200 MG; DAILY DOSE: 50 MG/ 400 MG
     Route: 048
     Dates: start: 2011
  3. METFORMIN [Concomitant]
     Route: 048
  4. ALENDRONATE [Concomitant]
     Dosage: 70 MG
     Route: 048
  5. LOSARTAN POTASSIUM [Concomitant]
     Route: 048
  6. CLONAZEPAN [Concomitant]
     Route: 048
  7. HYDROCHLOROTHIAZIDE [Concomitant]
     Route: 048
  8. ATORVASTATIN [Concomitant]
     Dosage: 80 MG
     Route: 048
  9. LABETALOL [Concomitant]
     Dosage: 300 MG
     Route: 048

REACTIONS (2)
  - Cerebrovascular accident [Recovered/Resolved with Sequelae]
  - Pneumonia [Not Recovered/Not Resolved]
